FAERS Safety Report 6528755-0 (Version None)
Quarter: 2010Q1

REPORT INFORMATION
  Report Type: 
  Country: None (occurrence: None)
  Receive Date: 20100106
  Receipt Date: 20091229
  Transmission Date: 20100710
  Serious: Yes (Hospitalization)
  Sender: FDA-Public Use
  Company Number: US-JNJFOC-20100100388

PATIENT
  Sex: Female

DRUGS (2)
  1. TYLENOL (CAPLET) [Suspect]
     Indication: ARTHRALGIA
     Route: 048
  2. TYLENOL (CAPLET) [Suspect]
     Indication: ARTHRITIS
     Route: 048

REACTIONS (3)
  - ABDOMINAL PAIN UPPER [None]
  - INFLUENZA LIKE ILLNESS [None]
  - PRODUCT QUALITY ISSUE [None]
